FAERS Safety Report 14898686 (Version 1)
Quarter: 2018Q2

REPORT INFORMATION
  Report Type: Spontaneous
  Country: US (occurrence: US)
  Receive Date: 20180515
  Receipt Date: 20180515
  Transmission Date: 20180711
  Serious: Yes (Other)
  Sender: FDA-Public Use
  Company Number: US-ALLERGAN-1824886US

PATIENT
  Age: 67 Year
  Sex: Male

DRUGS (22)
  1. DESMOPRESSIN [Concomitant]
     Active Substance: DESMOPRESSIN
  2. HYDROCHLOROTHIAZIDE UNK [Suspect]
     Active Substance: HYDROCHLOROTHIAZIDE
     Indication: PRODUCT USED FOR UNKNOWN INDICATION
     Route: 065
  3. ZOLPIDEM [Concomitant]
     Active Substance: ZOLPIDEM\ZOLPIDEM TARTRATE
  4. DABIGATRAN [Concomitant]
     Active Substance: DABIGATRAN
  5. LOSARTAN. [Concomitant]
     Active Substance: LOSARTAN
  6. PAROXETINE. [Concomitant]
     Active Substance: PAROXETINE
  7. ATORVASTATIN [Concomitant]
     Active Substance: ATORVASTATIN
  8. PAROXETINE. [Concomitant]
     Active Substance: PAROXETINE
  9. ACLIDINIUM BROMIDE. [Concomitant]
     Active Substance: ACLIDINIUM BROMIDE
     Route: 055
  10. ALBUTEROL. [Concomitant]
     Active Substance: ALBUTEROL
     Route: 055
  11. FENOFIBRATE. [Concomitant]
     Active Substance: FENOFIBRATE
  12. RANITIDINE. [Concomitant]
     Active Substance: RANITIDINE
  13. TESTOSTERONE UNK [Suspect]
     Active Substance: TESTOSTERONE
     Indication: PRODUCT USED FOR UNKNOWN INDICATION
     Route: 065
  14. FUROSEMIDE. [Concomitant]
     Active Substance: FUROSEMIDE
  15. PREDNISONE. [Concomitant]
     Active Substance: PREDNISONE
  16. LEVOTHYROXINE SODIUM. [Concomitant]
     Active Substance: LEVOTHYROXINE SODIUM
  17. SALMETEROL/FLUTICASONPROPIONAAT [Concomitant]
     Active Substance: FLUTICASONE PROPIONATE\SALMETEROL XINAFOATE
     Route: 055
  18. MOMETASONE [Concomitant]
     Active Substance: MOMETASONE
  19. METOPROLOL. [Concomitant]
     Active Substance: METOPROLOL
  20. SPIRONOLACTONE. [Concomitant]
     Active Substance: SPIRONOLACTONE
  21. LANSOPRAZOLE. [Concomitant]
     Active Substance: LANSOPRAZOLE
  22. ACETYLCYSTEINE. [Concomitant]
     Active Substance: ACETYLCYSTEINE

REACTIONS (1)
  - Yellow nail syndrome [Recovering/Resolving]
